FAERS Safety Report 4934312-X (Version None)
Quarter: 2006Q1

REPORT INFORMATION
  Report Type: 
  Country: None (occurrence: None)
  Receive Date: 20060307
  Receipt Date: 20050217
  Transmission Date: 20060701
  Serious: No
  Sender: FDA-Public Use
  Company Number: US-BRISTOL-MYERS SQUIBB COMPANY-12875134

PATIENT
  Age: 28 Year
  Sex: Female

DRUGS (2)
  1. MONISTAT-1 VAG OINT 6.5% [Suspect]
     Indication: VULVOVAGINAL MYCOTIC INFECTION
     Route: 067
     Dates: start: 20050215, end: 20050215
  2. AMOXICILLIN [Concomitant]

REACTIONS (4)
  - DYSPEPSIA [None]
  - NAUSEA [None]
  - TREMOR [None]
  - VOMITING [None]
